FAERS Safety Report 8508995-1 (Version None)
Quarter: 2012Q3

REPORT INFORMATION
  Report Type: 
  Country: None (occurrence: None)
  Receive Date: 20120702
  Receipt Date: 20120619
  Transmission Date: 20120928
  Serious: Yes (Hospitalization, Other)
  Sender: FDA-Public Use
  Company Number: 7139333

PATIENT
  Age: 2 Year
  Sex: Male

DRUGS (1)
  1. LEVOTHYROXINE SODIUM [Suspect]
     Indication: ACCIDENTAL DRUG INTAKE BY CHILD
     Dosage: (1 DF, ONCE)
     Route: 048
     Dates: start: 20120609, end: 20120609

REACTIONS (4)
  - BLOOD CREATINE PHOSPHOKINASE MB INCREASED [None]
  - BLOOD LACTATE DEHYDROGENASE INCREASED [None]
  - BLOOD CREATINE PHOSPHOKINASE INCREASED [None]
  - ACCIDENTAL DRUG INTAKE BY CHILD [None]
